FAERS Safety Report 6940763-4 (Version None)
Quarter: 2010Q3

REPORT INFORMATION
  Report Type: 
  Country: None (occurrence: None)
  Receive Date: 20100825
  Receipt Date: 20100816
  Transmission Date: 20110219
  Serious: Yes (Hospitalization)
  Sender: FDA-Public Use
  Company Number: US-ASTRAZENECA-2010SE38327

PATIENT
  Age: 83 Year
  Sex: Male
  Weight: 68 kg

DRUGS (13)
  1. SYMBICORT [Suspect]
     Indication: PLEURAL FIBROSIS
     Dosage: 640 UG TOTAL DAILY DOSE
     Route: 055
  2. ENALOPRIL [Concomitant]
     Indication: HYPERTENSION
  3. SODIUM DOCUSATE [Concomitant]
  4. MULTI-VITAMIN [Concomitant]
  5. NIZATIDINE [Concomitant]
     Indication: REFLUX OESOPHAGITIS
  6. CARBEDILOL [Concomitant]
     Indication: HYPERTENSION
  7. POTASSIUM CHLORIDE [Concomitant]
  8. FUROSEMIDE [Concomitant]
  9. SIMVASTATIN [Concomitant]
     Indication: HYPERCHOLESTEROLAEMIA
  10. ASPIRIN [Concomitant]
  11. MUCINEX [Concomitant]
  12. CLARITIN [Concomitant]
  13. SALINE NASAL SPRAY [Concomitant]

REACTIONS (2)
  - DIZZINESS [None]
  - HEART VALVE REPLACEMENT [None]
